FAERS Safety Report 15931547 (Version 2)
Quarter: 2019Q1

REPORT INFORMATION
  Report Type: Spontaneous
  Country: CN (occurrence: CN)
  Receive Date: 20190207
  Receipt Date: 20190312
  Transmission Date: 20190417
  Serious: Yes (Death, Hospitalization, Other)
  Sender: FDA-Public Use
  Company Number: CN-ROCHE-2256983

PATIENT
  Age: 49 Year
  Sex: Male

DRUGS (4)
  1. FOSCARNET SODIUM. [Concomitant]
     Active Substance: FOSCARNET SODIUM
     Indication: CYTOMEGALOVIRUS INFECTION
     Route: 065
     Dates: start: 20150923, end: 20150929
  2. ACYCLOVIR. [Concomitant]
     Active Substance: ACYCLOVIR
     Indication: CYTOMEGALOVIRUS INFECTION
     Route: 048
  3. GANCICLOVIR. [Suspect]
     Active Substance: GANCICLOVIR
     Route: 065
     Dates: start: 20150917, end: 20150920
  4. GANCICLOVIR. [Suspect]
     Active Substance: GANCICLOVIR
     Indication: ANTIVIRAL PROPHYLAXIS
     Route: 065

REACTIONS (6)
  - Pyrexia [Unknown]
  - Cytomegalovirus chorioretinitis [Recovering/Resolving]
  - Respiratory failure [Fatal]
  - Immune reconstitution inflammatory syndrome [Unknown]
  - Retinitis viral [Unknown]
  - Pneumonia [Fatal]
